FAERS Safety Report 10641770 (Version 1)
Quarter: 2014Q4

REPORT INFORMATION
  Report Type: Spontaneous
  Country: US (occurrence: US)
  Receive Date: 20141209
  Receipt Date: 20141209
  Transmission Date: 20150529
  Serious: No
  Sender: FDA-Public Use
  Company Number: US-PFIZER INC-2014335679

PATIENT

DRUGS (1)
  1. DUAVEE [Suspect]
     Active Substance: BAZEDOXIFENE ACETATE\ESTROGENS, CONJUGATED
     Dosage: (0.45 MG CONJUGATED ESTROGENS AND 20 MG BAZEDOXIFENE ACETATE), 1X/DAY

REACTIONS (1)
  - Dyspnoea [Recovered/Resolved]
